FAERS Safety Report 15384490 (Version 7)
Quarter: 2018Q4

REPORT INFORMATION
  Report Type: Report from Study
  Country: US (occurrence: US)
  Receive Date: 20180914
  Receipt Date: 20181101
  Transmission Date: 20190204
  Serious: Yes (Life-Threatening, Hospitalization, Other)
  Sender: FDA-Public Use
  Company Number: US-BRISTOL-MYERS SQUIBB COMPANY-BMS-2018-083514

PATIENT
  Age: 8 Year
  Sex: Female
  Weight: 20 kg

DRUGS (6)
  1. OMEPRAZOLE. [Concomitant]
     Active Substance: OMEPRAZOLE
     Indication: PRODUCT USED FOR UNKNOWN INDICATION
     Route: 065
  2. ACETAMINOPHEN. [Concomitant]
     Active Substance: ACETAMINOPHEN
     Indication: PRODUCT USED FOR UNKNOWN INDICATION
     Route: 065
  3. ACYCLOVIR                          /00587301/ [Concomitant]
     Active Substance: ACYCLOVIR
     Indication: PRODUCT USED FOR UNKNOWN INDICATION
     Route: 065
  4. FLUCONAZOLE. [Concomitant]
     Active Substance: FLUCONAZOLE
     Indication: PRODUCT USED FOR UNKNOWN INDICATION
     Route: 065
  5. MAGNESIUM OXIDE. [Concomitant]
     Active Substance: MAGNESIUM OXIDE
     Indication: PRODUCT USED FOR UNKNOWN INDICATION
     Route: 065
  6. NIVOLUMAB [Suspect]
     Active Substance: NIVOLUMAB
     Indication: NON-HODGKIN^S LYMPHOMA
     Dosage: 60 MG, Q2WK
     Route: 042
     Dates: start: 20180731, end: 20180731

REACTIONS (18)
  - Paraesthesia [Unknown]
  - Abdominal pain [Recovering/Resolving]
  - Lipase increased [Recovering/Resolving]
  - Tachycardia [Unknown]
  - Malnutrition [Unknown]
  - Clostridium difficile colitis [Recovering/Resolving]
  - Staphylococcus test positive [Unknown]
  - Pupils unequal [Recovering/Resolving]
  - Pyrexia [Recovering/Resolving]
  - Ejection fraction decreased [Unknown]
  - Hemiparesis [Recovering/Resolving]
  - Graft versus host disease in gastrointestinal tract [Unknown]
  - Tachypnoea [Recovering/Resolving]
  - Headache [Recovering/Resolving]
  - Cough [Recovering/Resolving]
  - Vomiting [Unknown]
  - Rash [Recovered/Resolved]
  - Respiratory failure [Unknown]

NARRATIVE: CASE EVENT DATE: 20180804
